FAERS Safety Report 11472741 (Version 1)
Quarter: 2015Q3

REPORT INFORMATION
  Report Type: Spontaneous
  Country: US (occurrence: None)
  Receive Date: 20150908
  Receipt Date: 20150908
  Transmission Date: 20151125
  Serious: Yes (Other)
  Sender: FDA-Public Use
  Company Number: US-MDT-ADR-2015-01732

PATIENT
  Age: 48 Year
  Sex: Male

DRUGS (2)
  1. MORPHINE INTRATHECAL 50MG/ML [Suspect]
     Active Substance: MORPHINE
     Indication: SPINAL PAIN
     Dosage: 15-17MG/DAY
  2. BACLOFEN INTRATHECAL [Suspect]
     Active Substance: BACLOFEN
     Indication: SPINAL PAIN

REACTIONS (11)
  - Abdominal pain upper [None]
  - Depressed level of consciousness [None]
  - Drug withdrawal syndrome [None]
  - Sleep apnoea syndrome [None]
  - Headache [None]
  - Seizure [None]
  - Dyspnoea [None]
  - Urinary incontinence [None]
  - Depression [None]
  - Anxiety [None]
  - Vomiting [None]
